FAERS Safety Report 9132370 (Version 1)
Quarter: 2013Q1

REPORT INFORMATION
  Report Type: Spontaneous
  Country: US (occurrence: US)
  Receive Date: 20130107
  Receipt Date: 20130107
  Transmission Date: 20140127
  Serious: Yes (Other)
  Sender: FDA-Public Use
  Company Number: US-GLAXOSMITHKLINE-A1006924A

PATIENT
  Age: 69 Year
  Sex: Female

DRUGS (6)
  1. ADVAIR [Suspect]
     Indication: ASTHMA
     Dosage: 1PUFF TWICE PER DAY
     Route: 055
     Dates: start: 200812
  2. LIPITOR [Concomitant]
  3. SINGULAIR [Concomitant]
  4. MULTIVITAMIN [Concomitant]
  5. CALCIUM [Concomitant]
  6. CLARITHROMYCIN [Concomitant]

REACTIONS (5)
  - Pneumonia [Recovering/Resolving]
  - Bronchitis [Recovering/Resolving]
  - Sinusitis [Recovering/Resolving]
  - Laryngitis [Recovering/Resolving]
  - Oral candidiasis [Recovering/Resolving]
